FAERS Safety Report 25810878 (Version 1)
Quarter: 2025Q3

REPORT INFORMATION
  Report Type: Report from Study
  Country: TH (occurrence: TH)
  Receive Date: 20250917
  Receipt Date: 20250917
  Transmission Date: 20251021
  Serious: Yes (Death)
  Sender: ALEXION PHARMACEUTICALS
  Company Number: TH-AstraZeneca-CH-00950994A

PATIENT
  Age: 56 Year
  Sex: Female

DRUGS (2)
  1. DURVALUMAB [Suspect]
     Active Substance: DURVALUMAB
     Indication: Hepatocellular carcinoma
     Dosage: 1500 MILLIGRAM, QMONTH
     Dates: start: 20250813
  2. IMJUDO [Suspect]
     Active Substance: TREMELIMUMAB\TREMELIMUMAB-ACTL
     Indication: Hepatocellular carcinoma
     Dosage: 300 MILLIGRAM, QMONTH
     Dates: start: 20250813

REACTIONS (9)
  - Death [Fatal]
  - Drug hypersensitivity [Fatal]
  - Rash erythematous [Fatal]
  - Diarrhoea [Fatal]
  - Vomiting [Fatal]
  - Fatigue [Fatal]
  - Infection [Fatal]
  - Gastric haemorrhage [Fatal]
  - Renal failure [Fatal]

NARRATIVE: CASE EVENT DATE: 20250903
